FAERS Safety Report 23930956 (Version 1)
Quarter: 2024Q2

REPORT INFORMATION
  Report Type: Spontaneous
  Country: US (occurrence: US)
  Receive Date: 20240603
  Receipt Date: 20240603
  Transmission Date: 20240716
  Serious: Yes (Other)
  Sender: FDA-Public Use
  Company Number: US-ROCHE-3564723

PATIENT
  Age: 38 Year
  Sex: Female

DRUGS (22)
  1. CLONAZEPAM [Suspect]
     Active Substance: CLONAZEPAM
     Indication: Product used for unknown indication
     Dates: start: 20201219
  2. OCREVUS [Suspect]
     Active Substance: OCRELIZUMAB
     Indication: Relapsing multiple sclerosis
     Dosage: SUBSEQUENT DOSE ON 30/AUG/2023
     Route: 042
     Dates: start: 2020
  3. OCREVUS [Suspect]
     Active Substance: OCRELIZUMAB
     Indication: Relapsing multiple sclerosis
     Route: 042
     Dates: start: 20230830
  4. PROZAC [Concomitant]
     Active Substance: FLUOXETINE HYDROCHLORIDE
     Dosage: DAILY DOSE: 40 MILLIGRAM
     Route: 048
     Dates: start: 2021
  5. VESICARE [Concomitant]
     Active Substance: SOLIFENACIN SUCCINATE
     Dosage: DAILY DOSE: 2 MILLIGRAM
     Route: 048
     Dates: start: 2022
  6. METHYLPHENIDATE [Concomitant]
     Active Substance: METHYLPHENIDATE
     Dosage: DAILY DOSE: 27 MILLIGRAM
     Route: 048
     Dates: start: 2022
  7. TIZANIDINE [Concomitant]
     Active Substance: TIZANIDINE
     Dosage: EVERY NIGHT AT BEDTIME?DAILY DOSE: 4 MILLIGRAM
     Route: 048
     Dates: start: 2019
  8. AJOVY [Concomitant]
     Active Substance: FREMANEZUMAB-VFRM
     Route: 058
     Dates: start: 20230530
  9. SOLU-MEDROL [Concomitant]
     Active Substance: METHYLPREDNISOLONE SODIUM SUCCINATE
     Route: 042
     Dates: start: 2020
  10. BENADRYL [Concomitant]
     Active Substance: DIPHENHYDRAMINE HYDROCHLORIDE
     Route: 042
     Dates: start: 2020
  11. SODIUM CHLORIDE [Concomitant]
     Active Substance: SODIUM CHLORIDE
  12. FAMOTIDINE [Concomitant]
     Active Substance: FAMOTIDINE
  13. VITAMIN D [Concomitant]
     Active Substance: VITAMIN D NOS
  14. VITAMIN E [Concomitant]
     Active Substance: .ALPHA.-TOCOPHEROL
  15. UBRELVY [Concomitant]
     Active Substance: UBROGEPANT
  16. MAXALT [Concomitant]
     Active Substance: RIZATRIPTAN BENZOATE
  17. CONCERTA [Concomitant]
     Active Substance: METHYLPHENIDATE HYDROCHLORIDE
  18. LORATADINE [Concomitant]
     Active Substance: LORATADINE
  19. EMGALITY [Concomitant]
     Active Substance: GALCANEZUMAB-GNLM
  20. TOLTERODINE [Concomitant]
     Active Substance: TOLTERODINE
  21. ZOFRAN [Concomitant]
     Active Substance: ONDANSETRON HYDROCHLORIDE
  22. TYLENOL [Concomitant]
     Active Substance: ACETAMINOPHEN

REACTIONS (11)
  - Syncope [Unknown]
  - Tremor [Unknown]
  - Headache [Unknown]
  - Lethargy [Unknown]
  - Dyspnoea exertional [Unknown]
  - Hypertension [Unknown]
  - Chest pain [Unknown]
  - Throat irritation [Recovered/Resolved]
  - Migraine [Unknown]
  - Bladder dysfunction [Unknown]
  - Cough [Unknown]

NARRATIVE: CASE EVENT DATE: 20210301
